FAERS Safety Report 24986061 (Version 1)
Quarter: 2025Q1

REPORT INFORMATION
  Report Type: Spontaneous
  Country: US (occurrence: US)
  Receive Date: 20250219
  Receipt Date: 20250219
  Transmission Date: 20250409
  Serious: Yes (Hospitalization, Other)
  Sender: HIKMA
  Company Number: US-MLMSERVICE-20250205-PI395575-00329-1

PATIENT
  Age: 46 Year
  Sex: Female

DRUGS (3)
  1. VANCOMYCIN [Suspect]
     Active Substance: VANCOMYCIN
     Indication: Cutibacterium acnes infection
     Route: 065
  2. VANCOMYCIN [Suspect]
     Active Substance: VANCOMYCIN
     Route: 042
  3. TOBRAMYCIN [Concomitant]
     Active Substance: TOBRAMYCIN
     Indication: Cutibacterium acnes infection
     Route: 065

REACTIONS (2)
  - Hepatic enzyme increased [Recovering/Resolving]
  - Drug reaction with eosinophilia and systemic symptoms [Recovered/Resolved]
